FAERS Safety Report 6615674-4 (Version None)
Quarter: 2010Q1

REPORT INFORMATION
  Report Type: 
  Country: None (occurrence: None)
  Receive Date: 20100305
  Receipt Date: 20100223
  Transmission Date: 20100710
  Serious: Yes (Hospitalization)
  Sender: FDA-Public Use
  Company Number: US-ROCHE-687721

PATIENT
  Sex: Female

DRUGS (2)
  1. DIAZEPAM [Suspect]
     Indication: BACK PAIN
     Route: 065
     Dates: start: 20100125
  2. OXYCODONE HCL [Suspect]
     Indication: BACK PAIN
     Route: 065
     Dates: start: 20100125

REACTIONS (10)
  - ASTHMA [None]
  - BRONCHITIS [None]
  - CARDIAC FAILURE CONGESTIVE [None]
  - DRUG ABUSE [None]
  - HYPERLIPIDAEMIA [None]
  - HYPERTENSION [None]
  - NEUROPATHY PERIPHERAL [None]
  - RENAL FAILURE ACUTE [None]
  - SLEEP APNOEA SYNDROME [None]
  - TYPE 2 DIABETES MELLITUS [None]
